FAERS Safety Report 17261980 (Version 1)
Quarter: 2020Q1

REPORT INFORMATION
  Report Type: Spontaneous
  Country: FR (occurrence: FR)
  Receive Date: 20200113
  Receipt Date: 20200113
  Transmission Date: 20200409
  Serious: Yes (Hospitalization)
  Sender: FDA-Public Use
  Company Number: FR-PFIZER INC-2020010344

PATIENT
  Age: 54 Year
  Sex: Female
  Weight: 64 kg

DRUGS (17)
  1. HYDROCORTISONE. [Suspect]
     Active Substance: HYDROCORTISONE
     Indication: SHOCK
     Dosage: POSOLOGY NOT REPORTED
     Dates: start: 20191124, end: 20191125
  2. SUFENTANIL MYLAN [Suspect]
     Active Substance: SUFENTANIL
     Indication: SEDATIVE THERAPY
     Dosage: POSOLOGY NOT REPORTED
     Route: 042
     Dates: start: 20191124, end: 20191125
  3. FLUDROCORTISONE [Suspect]
     Active Substance: FLUDROCORTISONE
     Indication: SHOCK
     Dosage: POSOLOGY NOT REPORTED
     Route: 048
     Dates: start: 20191124, end: 20191125
  4. MIDAZOLAM MYLAN [Suspect]
     Active Substance: MIDAZOLAM HYDROCHLORIDE
     Indication: SEDATIVE THERAPY
     Dosage: POSOLOGY NOT REPORTED
     Route: 042
     Dates: start: 20191124, end: 20191125
  5. CELOCURINE [SUXAMETHONIUM CHLORIDE] [Suspect]
     Active Substance: SUCCINYLCHOLINE CHLORIDE
     Indication: NEUROMUSCULAR BLOCKING THERAPY
     Dosage: POSOLOGY NOT REPORTED
     Route: 042
     Dates: start: 20191124, end: 20191125
  6. LOVENOX [Concomitant]
     Active Substance: ENOXAPARIN SODIUM
     Dosage: UNK
  7. URBANYL [Concomitant]
     Active Substance: CLOBAZAM
     Dosage: UNK
  8. METRONIDAZOLE BAXTER [Suspect]
     Active Substance: METRONIDAZOLE
     Indication: LUNG DISORDER
     Dosage: POSOLOGY NOT REPORTED
     Route: 042
     Dates: start: 20191125, end: 20191126
  9. NORADRENALINE MYLAN [Suspect]
     Active Substance: NOREPINEPHRINE\NOREPINEPHRINE BITARTRATE
     Indication: HAEMODYNAMIC INSTABILITY
     Dosage: 6 MG, EVERY HOUR
     Route: 042
     Dates: start: 20191124, end: 20191125
  10. CEFOTAXIM MYLAN [Suspect]
     Active Substance: CEFOTAXIME SODIUM
     Indication: SEPTIC SHOCK
     Dosage: POSOLOGY NOT REPORTED
     Route: 042
     Dates: start: 20191125, end: 20191126
  11. HYPNOMIDATE [ETOMIDATE HYDROCHLORIDE] [Suspect]
     Active Substance: ETOMIDATE HYDROCHLORIDE
     Indication: SEDATIVE THERAPY
     Dosage: POSOLOGY NOT REPORTED
     Route: 042
     Dates: start: 20191124, end: 20191125
  12. PIPERACILLIN AND TAZOBACTAM [Suspect]
     Active Substance: PIPERACILLIN SODIUM\TAZOBACTAM SODIUM
     Indication: SEPTIC SHOCK
     Dosage: POSOLOGY NOT REPORTED
     Route: 042
     Dates: start: 20191124, end: 20191125
  13. LEVETIRACETAM ARROW [Concomitant]
     Active Substance: LEVETIRACETAM
     Dosage: UNK
  14. XENETIX 350 [Suspect]
     Active Substance: IOBITRIDOL
     Indication: COMPUTERISED TOMOGRAM
     Dosage: 1, TOTAL
     Route: 042
     Dates: start: 20191124, end: 20191124
  15. IOMERON [Suspect]
     Active Substance: IOMEPROL
     Indication: COMPUTERISED TOMOGRAM
     Dosage: 90 ML, SINGLE
     Route: 042
     Dates: start: 20191125, end: 20191125
  16. AMLOR [Concomitant]
     Active Substance: AMLODIPINE BESYLATE
     Dosage: UNK
  17. AUGMENTIN [Concomitant]
     Active Substance: AMOXICILLIN\CLAVULANATE POTASSIUM
     Dosage: UNK

REACTIONS (1)
  - Dermatitis bullous [Recovering/Resolving]

NARRATIVE: CASE EVENT DATE: 20191126
